FAERS Safety Report 4429907-6 (Version None)
Quarter: 2004Q3

REPORT INFORMATION
  Report Type: 
  Country: None (occurrence: None)
  Receive Date: 20040817
  Receipt Date: 20040802
  Transmission Date: 20050211
  Serious: Yes (Hospitalization)
  Sender: FDA-Public Use
  Company Number: 701962

PATIENT
  Age: 33 Year
  Sex: Female

DRUGS (4)
  1. AMEVIVE [Suspect]
     Indication: PSORIASIS
     Dosage: 15 MG QW IM
     Dates: start: 20040220
  2. CYCLOSPORINE [Concomitant]
  3. SORIATANE [Concomitant]
  4. AUGMENTIN '125' [Concomitant]

REACTIONS (5)
  - DERMATITIS BULLOUS [None]
  - DERMATITIS PSORIASIFORM [None]
  - DRUG ERUPTION [None]
  - HYPERSENSITIVITY [None]
  - SKIN BACTERIAL INFECTION [None]
